FAERS Safety Report 9237409 (Version 2)
Quarter: 2013Q2

REPORT INFORMATION
  Report Type: Spontaneous
  Country: US (occurrence: US)
  Receive Date: 20130417
  Receipt Date: 20130605
  Transmission Date: 20140414
  Serious: Yes (Other)
  Sender: FDA-Public Use
  Company Number: US-PFIZER INC-2013116718

PATIENT
  Age: 58 Year
  Sex: Male
  Weight: 88.44 kg

DRUGS (5)
  1. VFEND [Suspect]
     Indication: ASPERGILLUS INFECTION
     Dosage: 200 MG, 3X/DAY
     Route: 048
     Dates: start: 20130401, end: 201304
  2. VFEND [Suspect]
     Indication: MENINGITIS FUNGAL
     Dosage: 200 MG, 2X/DAY
     Route: 048
     Dates: start: 201304
  3. MELOXICAM [Concomitant]
     Indication: ARTHRITIS
     Dosage: UNK
  4. ROBAXIN [Concomitant]
     Dosage: 750 MG, 4X/DAY
  5. PAXIL [Concomitant]
     Dosage: 200 MG, 1X/DAY
     Dates: end: 20130515

REACTIONS (2)
  - Hallucination, visual [Recovered/Resolved]
  - Photophobia [Unknown]
